FAERS Safety Report 12208748 (Version 1)
Quarter: 2016Q1

REPORT INFORMATION
  Report Type: Spontaneous
  Country: US (occurrence: US)
  Receive Date: 20160324
  Receipt Date: 20160324
  Transmission Date: 20160526
  Serious: No
  Sender: FDA-Public Use
  Company Number: US-SHIONOGI, INC-2015001153

PATIENT
  Sex: Female

DRUGS (21)
  1. TRIAMTERENE AND HYDROCHLOROTHIAZIDE [Concomitant]
     Active Substance: HYDROCHLOROTHIAZIDE\TRIAMTERENE
     Indication: HYPERTENSION
  2. ALLERGY RELIEF                     /00917501/ [Concomitant]
     Indication: RHINITIS ALLERGIC
     Dosage: UNK
     Dates: start: 1990
  3. HYDROXYZINE [Concomitant]
     Active Substance: HYDROXYZINE\HYDROXYZINE HYDROCHLORIDE
     Indication: ANXIETY
     Dosage: 25 MG, UNK
     Route: 065
     Dates: start: 2010
  4. ROPINIROLE. [Concomitant]
     Active Substance: ROPINIROLE
     Indication: MUSCLE SPASMS
     Dosage: 5 MG, UNK
     Route: 065
     Dates: start: 2014
  5. FLOVENT [Concomitant]
     Active Substance: FLUTICASONE PROPIONATE
     Indication: PRODUCT USED FOR UNKNOWN INDICATION
     Dosage: 45 ?G, UNK
     Route: 055
  6. MACROBID [Concomitant]
     Active Substance: NITROFURANTOIN\NITROFURANTOIN MONOHYDRATE
     Indication: PROPHYLAXIS
     Dosage: 50 MG, UNK
     Route: 065
     Dates: start: 201506
  7. LEVOTHYROXINE. [Concomitant]
     Active Substance: LEVOTHYROXINE
     Indication: HYPOTHYROIDISM
     Dosage: 50 ?G, UNK
     Route: 065
     Dates: start: 2008
  8. ESTRACE [Concomitant]
     Active Substance: ESTRADIOL
     Indication: PRODUCT USED FOR UNKNOWN INDICATION
     Dosage: UNK, 3 TIMES A WEEK
     Route: 065
     Dates: start: 2008, end: 20161026
  9. OSPHENA [Suspect]
     Active Substance: OSPEMIFENE
     Indication: VAGINAL INFECTION
     Dosage: 60 MG, QD
     Route: 048
     Dates: start: 20151027
  10. OSPHENA [Suspect]
     Active Substance: OSPEMIFENE
     Indication: OFF LABEL USE
  11. BETAMETHASONE. [Concomitant]
     Active Substance: BETAMETHASONE
     Indication: VULVOVAGINAL PRURITUS
     Dosage: UNK
     Route: 065
  12. PREVACID [Concomitant]
     Active Substance: LANSOPRAZOLE
     Indication: ANTACID THERAPY
  13. PROVENTIL [Concomitant]
     Active Substance: ALBUTEROL
     Indication: ASTHMA
     Dosage: 0.83 %, 2.5MG/3ML UNK
     Route: 065
     Dates: start: 2012
  14. CLOBETASOL PROPIONATE. [Concomitant]
     Active Substance: CLOBETASOL PROPIONATE
     Indication: VAGINAL INFECTION
     Dosage: UNK
     Route: 065
     Dates: start: 201506
  15. MELATONIN [Concomitant]
     Active Substance: MELATONIN
     Indication: SLEEP DISORDER
     Dosage: UNK
     Route: 065
     Dates: start: 2014
  16. PREVACID [Concomitant]
     Active Substance: LANSOPRAZOLE
     Indication: ABDOMINAL DISCOMFORT
     Dosage: UNK
     Route: 065
     Dates: start: 2013
  17. TRIAMTERENE AND HYDROCHLOROTHIAZIDE [Concomitant]
     Active Substance: HYDROCHLOROTHIAZIDE\TRIAMTERENE
     Indication: FLUID RETENTION
     Dosage: 75/50 MG
     Route: 065
  18. ROPINIROLE. [Concomitant]
     Active Substance: ROPINIROLE
     Indication: RESTLESS LEGS SYNDROME
  19. GUAIFENESIN. [Concomitant]
     Active Substance: GUAIFENESIN
     Indication: SINUS CONGESTION
     Dosage: 40 MG, UNK
     Route: 065
     Dates: start: 2005
  20. NASOCORT [Concomitant]
     Active Substance: BUDESONIDE
     Indication: PRODUCT USED FOR UNKNOWN INDICATION
     Dosage: UNK
     Route: 045
  21. SIMVASTATIN. [Concomitant]
     Active Substance: SIMVASTATIN
     Indication: BLOOD CHOLESTEROL INCREASED
     Dosage: 40 MG, UNK
     Route: 065
     Dates: start: 2011, end: 20151021

REACTIONS (2)
  - Off label use [Unknown]
  - No adverse event [Unknown]
